FAERS Safety Report 17766739 (Version 1)
Quarter: 2020Q2

REPORT INFORMATION
  Report Type: Spontaneous
  Country: RU (occurrence: RU)
  Receive Date: 20200511
  Receipt Date: 20200511
  Transmission Date: 20200714
  Serious: Yes (Other)
  Sender: FDA-Public Use
  Company Number: RU-SA-2020SA116444

PATIENT
  Age: 44 Year
  Sex: Female
  Weight: 105 kg

DRUGS (5)
  1. PERINEVA [Concomitant]
     Active Substance: PERINDOPRIL ERBUMINE
     Indication: ESSENTIAL HYPERTENSION
     Dosage: 2.5 / 8
     Route: 048
  2. CARDIOMAGNYL [Concomitant]
     Active Substance: ASPIRIN\MAGNESIUM HYDROXIDE
     Indication: ESSENTIAL HYPERTENSION
     Dosage: 75 MG
     Route: 048
  3. SOLIQUA 100/33 [Suspect]
     Active Substance: INSULIN GLARGINE\LIXISENATIDE
     Indication: TYPE 2 DIABETES MELLITUS
     Dosage: 24 IU
     Route: 058
     Dates: start: 20200416, end: 20200425
  4. ATORVASTATIN [Concomitant]
     Active Substance: ATORVASTATIN
     Indication: HYPERCHOLESTEROLAEMIA
     Dosage: 20 MG
     Route: 048
  5. METFORMIN [Concomitant]
     Active Substance: METFORMIN HYDROCHLORIDE
     Indication: TYPE 2 DIABETES MELLITUS
     Dosage: 1000 MG
     Route: 048

REACTIONS (3)
  - Swelling face [Recovering/Resolving]
  - Hypoglycaemia [Recovering/Resolving]
  - Peripheral swelling [Recovering/Resolving]

NARRATIVE: CASE EVENT DATE: 20200420
